FAERS Safety Report 10729126 (Version 1)
Quarter: 2015Q1

REPORT INFORMATION
  Report Type: Spontaneous
  Country: US (occurrence: None)
  Receive Date: 20150120
  Receipt Date: 20150120
  Transmission Date: 20150721
  Serious: No
  Sender: FDA-Public Use
  Company Number: None

PATIENT
  Age: 27 Year
  Sex: Female
  Weight: 74.84 kg

DRUGS (1)
  1. MIRENA [Suspect]
     Active Substance: LEVONORGESTREL
     Dates: start: 20131031

REACTIONS (4)
  - Device dislocation [None]
  - Medical device complication [None]
  - Uterine perforation [None]
  - Muscle spasms [None]

NARRATIVE: CASE EVENT DATE: 20150113
